FAERS Safety Report 6907354-2 (Version None)
Quarter: 2010Q3

REPORT INFORMATION
  Report Type: 
  Country: None (occurrence: None)
  Receive Date: 20100802
  Receipt Date: 20100717
  Transmission Date: 20110219
  Serious: Yes (Hospitalization, Other)
  Sender: FDA-Public Use
  Company Number: 2010R3-36331

PATIENT
  Age: 46 Year
  Sex: Male

DRUGS (2)
  1. CIPROFLAXACIN [Suspect]
     Indication: MYCOBACTERIUM ULCERANS INFECTION
     Dosage: 500MG, BID
  2. RIFAMPICIN [Suspect]
     Indication: MYCOBACTERIUM ULCERANS INFECTION
     Dosage: 300 MG

REACTIONS (4)
  - ERYTHEMA [None]
  - JOINT SWELLING [None]
  - PARADOXICAL DRUG REACTION [None]
  - TREATMENT FAILURE [None]
